FAERS Safety Report 21128393 (Version 1)
Quarter: 2022Q3

REPORT INFORMATION
  Report Type: Spontaneous
  Country: US (occurrence: US)
  Receive Date: 20220725
  Receipt Date: 20220725
  Transmission Date: 20221027
  Serious: No
  Sender: FDA-Public Use
  Company Number: US-PFIZER INC-2016411219

PATIENT
  Age: 15 Year
  Sex: Female
  Weight: 68.5 kg

DRUGS (2)
  1. RAPAMUNE [Suspect]
     Active Substance: SIROLIMUS
     Indication: Prophylaxis against transplant rejection
     Dosage: 1.5 MG (3 TABLETS), DAILY (EVERY MORNING)
     Route: 048
     Dates: start: 20140826
  2. TACROLIMUS [Concomitant]
     Active Substance: TACROLIMUS
     Indication: Heart transplant
     Dosage: 1 MG, 2X/DAY
     Route: 048
     Dates: start: 20090322

REACTIONS (2)
  - Off label use [Unknown]
  - Epstein-Barr virus infection [Unknown]
